FAERS Safety Report 12537386 (Version 1)
Quarter: 2016Q3

REPORT INFORMATION
  Report Type: Spontaneous
  Country: US (occurrence: US)
  Receive Date: 20160707
  Receipt Date: 20160707
  Transmission Date: 20161109
  Serious: No
  Sender: FDA-Public Use
  Company Number: US-MISSION PHARMACAL COMPANY-1054773

PATIENT
  Age: 41 Year
  Sex: Male

DRUGS (3)
  1. THIOLA [Suspect]
     Active Substance: TIOPRONIN
     Indication: CYSTINURIA
     Route: 065
     Dates: start: 20151212
  2. THIOLA [Suspect]
     Active Substance: TIOPRONIN
     Route: 065
     Dates: start: 20151212
  3. POTASSIUM CITRATE. [Concomitant]
     Active Substance: POTASSIUM CITRATE
     Route: 065

REACTIONS (5)
  - Blood creatinine increased [Unknown]
  - Swelling face [Unknown]
  - Laboratory test interference [None]
  - Calculus urinary [Unknown]
  - Therapy change [None]
